FAERS Safety Report 10475854 (Version 2)
Quarter: 2014Q3

REPORT INFORMATION
  Report Type: Spontaneous
  Country: JP (occurrence: JP)
  Receive Date: 20140925
  Receipt Date: 20140925
  Transmission Date: 20150326
  Serious: No
  Sender: FDA-Public Use
  Company Number: JP-GLAXOSMITHKLINE-B0699875A

PATIENT
  Age: 24 Year
  Sex: Female

DRUGS (1)
  1. RELENZA [Suspect]
     Active Substance: ZANAMIVIR
     Indication: INFLUENZA
     Route: 055
     Dates: start: 20110204, end: 20110205

REACTIONS (2)
  - Exposure during pregnancy [Unknown]
  - Delivery [Unknown]
